FAERS Safety Report 9830008 (Version 2)
Quarter: 2017Q4

REPORT INFORMATION
  Report Type: Spontaneous
  Country: CA (occurrence: CA)
  Receive Date: 20140120
  Receipt Date: 20171020
  Transmission Date: 20180321
  Serious: Yes (Other)
  Sender: FDA-Public Use
  Company Number: CA-MERCK-1401CAN006916

PATIENT
  Age: 56 Year
  Sex: Female
  Weight: 67 kg

DRUGS (8)
  1. PREMARIN [Concomitant]
     Active Substance: ESTROGENS, CONJUGATED
     Dosage: 0.625 (UNKNOWN UNIT), UNK
     Route: 048
  2. URACYST [Concomitant]
     Dosage: 20 MG, WEEKLY
     Route: 065
  3. CRESTOR [Concomitant]
     Active Substance: ROSUVASTATIN CALCIUM
     Dosage: 20 MG, QD
     Route: 048
  4. CITALOPRAM [Concomitant]
     Active Substance: CITALOPRAM HYDROBROMIDE
     Dosage: 20 MG, QD
     Route: 048
  5. SAPHRIS [Suspect]
     Active Substance: ASENAPINE MALEATE
     Indication: BIPOLAR I DISORDER
     Dosage: 5 MG, 1 EVERY 1 DAY
     Route: 048
     Dates: start: 20130426, end: 20130501
  6. TECTA [Concomitant]
     Active Substance: PANTOPRAZOLE MAGNESIUM
     Dosage: 40 MG, QD
     Route: 048
  7. PRISTIQ EXTENDED-RELEASE [Concomitant]
     Active Substance: DESVENLAFAXINE SUCCINATE
     Dosage: 100 MG, QD
     Route: 048
  8. VESICARE [Concomitant]
     Active Substance: SOLIFENACIN SUCCINATE
     Dosage: 5 MG, QD
     Route: 048

REACTIONS (1)
  - Anaphylactic reaction [Recovered/Resolved]
